FAERS Safety Report 8798507 (Version 2)
Quarter: 2015Q1

REPORT INFORMATION
  Report Type: Report from Study
  Country: US (occurrence: US)
  Receive Date: 20120920
  Receipt Date: 20150308
  Transmission Date: 20150721
  Serious: Yes (Death)
  Sender: FDA-Public Use
  Company Number: US-ROCHE-1123245

PATIENT
  Sex: Female

DRUGS (11)
  1. ETOPOSIDE. [Concomitant]
     Active Substance: ETOPOSIDE
  2. AVASTIN [Suspect]
     Active Substance: BEVACIZUMAB
     Indication: BRAIN NEOPLASM MALIGNANT
     Dosage: INFUSION DATES: 26/JUL/2006, 09/AUG/2006, 23/AUG/2006 AND 06/SEP/2006 .
     Route: 042
     Dates: start: 20060712
  3. TEMODAR [Concomitant]
     Active Substance: TEMOZOLOMIDE
  4. GLEEVEC [Concomitant]
     Active Substance: IMATINIB MESYLATE
  5. PROVIGIL [Concomitant]
     Active Substance: MODAFINIL
  6. ALTEPLASE [Concomitant]
     Active Substance: ALTEPLASE
     Route: 065
  7. VERAPAMIL [Concomitant]
     Active Substance: VERAPAMIL HYDROCHLORIDE
  8. TARCEVA [Suspect]
     Active Substance: ERLOTINIB HYDROCHLORIDE
     Indication: PRODUCT USED FOR UNKNOWN INDICATION
     Route: 065
  9. ACCUTANE [Concomitant]
     Active Substance: ISOTRETINOIN
     Route: 065
  10. KEPPRA [Concomitant]
     Active Substance: LEVETIRACETAM
  11. HYDROXYUREA. [Concomitant]
     Active Substance: HYDROXYUREA

REACTIONS (2)
  - Off label use [Unknown]
  - Death [Fatal]
